FAERS Safety Report 17222599 (Version 1)
Quarter: 2020Q1

REPORT INFORMATION
  Report Type: Report from Study
  Country: JP (occurrence: JP)
  Receive Date: 20200102
  Receipt Date: 20200102
  Transmission Date: 20200409
  Serious: Yes (Death, Life-Threatening, Other)
  Sender: FDA-Public Use
  Company Number: JP-AMGEN-JPNCT2019217045

PATIENT
  Age: 66 Year
  Sex: Female

DRUGS (49)
  1. REBAMIPIDE [Concomitant]
     Active Substance: REBAMIPIDE
     Dosage: UNK
     Route: 048
     Dates: end: 20161221
  2. PANTETHINE [Concomitant]
     Active Substance: PANTETHINE
     Dosage: UNK
     Route: 048
     Dates: end: 20161222
  3. LOXOPROFEN [Concomitant]
     Active Substance: LOXOPROFEN
     Indication: HEADACHE
     Dosage: UNK
     Route: 048
     Dates: end: 20161214
  4. FILGRASTIM [Concomitant]
     Active Substance: FILGRASTIM
     Dosage: UNK
     Route: 065
     Dates: end: 20160923
  5. TAZOPIPE [Concomitant]
     Active Substance: PIPERACILLIN SODIUM\TAZOBACTAM SODIUM
     Indication: LIVER ABSCESS
     Dosage: UNK
     Route: 065
     Dates: end: 20161208
  6. FIRSTCIN [Concomitant]
     Active Substance: CEFOZOPRAN HYDROCHLORIDE
     Indication: PNEUMONIA
     Dosage: UNK
     Route: 065
     Dates: end: 20161031
  7. CALONAL [Concomitant]
     Active Substance: ACETAMINOPHEN
     Indication: PYREXIA
     Dosage: UNK
     Route: 048
     Dates: end: 20161207
  8. SYCREST [Concomitant]
     Active Substance: ASENAPINE MALEATE
     Indication: MENTAL DISORDER
     Dosage: UNK
     Route: 060
     Dates: end: 20161215
  9. DIAPP [Concomitant]
     Active Substance: DIAZEPAM
     Indication: RESTLESSNESS
     Dosage: UNK
     Route: 054
     Dates: end: 20161214
  10. DEXART [Concomitant]
     Active Substance: DEXAMETHASONE SODIUM PHOSPHATE
     Indication: PYREXIA
     Dosage: UNK
     Route: 065
     Dates: end: 20161222
  11. ROPION [Concomitant]
     Active Substance: FLURBIPROFEN AXETIL
     Indication: ABDOMINAL PAIN UPPER
     Dosage: UNK
     Route: 065
     Dates: end: 20161221
  12. LIVERES [FLAVINE ADENINE DINUCLEOTIDE;LIVER EXTRACT] [Concomitant]
     Indication: HEPATORENAL SYNDROME
     Dosage: UNK
     Route: 065
     Dates: end: 20161221
  13. GRAN [Concomitant]
     Active Substance: FILGRASTIM
     Dosage: UNK
     Route: 065
     Dates: end: 20160801
  14. NEORAL [Concomitant]
     Active Substance: CYCLOSPORINE
     Indication: MYELODYSPLASTIC SYNDROME
     Dosage: UNK
     Route: 048
     Dates: start: 20160915, end: 20161012
  15. MOHRUS [Concomitant]
     Active Substance: KETOPROFEN
     Dosage: UNK
     Dates: end: 20161014
  16. HIRUDOID [Concomitant]
     Active Substance: GLYCOSAMINOGLYCANS
     Indication: DRY SKIN
     Dosage: UNK
     Route: 061
     Dates: end: 20161222
  17. CEFTRIAXONE SODIUM HYDRATE [Concomitant]
     Active Substance: CEFTRIAXONE SODIUM
     Indication: VOMITING
  18. DIAINAMIX [CYANOCOBALAMIN;PYRIDOXINE HYDROCHLORIDE;THIAMINE DISULFIDE] [Concomitant]
     Dosage: UNK
     Route: 065
     Dates: end: 20161222
  19. MIDAZOLAM HYDROCHLORIDE. [Concomitant]
     Active Substance: MIDAZOLAM HYDROCHLORIDE
     Indication: RESTLESSNESS
  20. LIVERES [FLAVINE ADENINE DINUCLEOTIDE;LIVER EXTRACT] [Concomitant]
     Indication: BLOOD LACTATE DEHYDROGENASE INCREASED
  21. DARBEPOETIN ALFA [Suspect]
     Active Substance: DARBEPOETIN ALFA
     Indication: MYELODYSPLASTIC SYNDROME
     Dosage: 240 MICROGRAM, QWK
     Route: 058
     Dates: start: 20160720, end: 20160727
  22. DARBEPOETIN ALFA [Suspect]
     Active Substance: DARBEPOETIN ALFA
     Dosage: 240 MICROGRAM
     Route: 058
     Dates: start: 20160806, end: 20160806
  23. FENTOS [Concomitant]
     Active Substance: FENTANYL
     Indication: ABDOMINAL PAIN UPPER
     Dosage: UNK
     Dates: end: 20161220
  24. ITRACONAZOLE. [Concomitant]
     Active Substance: ITRACONAZOLE
     Dosage: UNK
     Route: 048
     Dates: end: 20161211
  25. LANSOPRAZOLE. [Concomitant]
     Active Substance: LANSOPRAZOLE
     Dosage: UNK
     Route: 048
     Dates: end: 20161221
  26. OXINORM [OXYCODONE HYDROCHLORIDE] [Concomitant]
     Active Substance: OXYCODONE HYDROCHLORIDE
     Indication: ABDOMINAL PAIN UPPER
     Dosage: UNK
     Route: 048
     Dates: end: 20161215
  27. CEFTRIAXONE SODIUM HYDRATE [Concomitant]
     Active Substance: CEFTRIAXONE SODIUM
     Indication: PYREXIA
     Dosage: UNK
     Route: 065
     Dates: end: 20160720
  28. CEFTRIAXONE SODIUM HYDRATE [Concomitant]
     Active Substance: CEFTRIAXONE SODIUM
     Indication: MALAISE
  29. GRANISETRON [GRANISETRON HYDROCHLORIDE] [Concomitant]
     Active Substance: GRANISETRON HYDROCHLORIDE
     Indication: MYELODYSPLASTIC SYNDROME
     Dosage: 1 MILLIGRAM
     Route: 065
     Dates: end: 20161129
  30. FAMOTIDINE. [Concomitant]
     Active Substance: FAMOTIDINE
     Dosage: UNK
     Route: 065
     Dates: end: 20161222
  31. FUROSEMIDE. [Concomitant]
     Active Substance: FUROSEMIDE
     Indication: BLOOD POTASSIUM INCREASED
     Dosage: UNK
     Route: 065
     Dates: end: 20161220
  32. FUROSEMIDE. [Concomitant]
     Active Substance: FUROSEMIDE
     Indication: HYPERTENSION
  33. FIRSTCIN [Concomitant]
     Active Substance: CEFOZOPRAN HYDROCHLORIDE
     Indication: PYREXIA
     Dosage: UNK
     Route: 065
     Dates: end: 20161221
  34. VANCOMYCINE [VANCOMYCIN HYDROCHLORIDE] [Concomitant]
     Active Substance: VANCOMYCIN HYDROCHLORIDE
     Dosage: UNK
     Route: 065
     Dates: end: 20161216
  35. LEVOFLOXACIN HEMIHYDRATE [Concomitant]
     Active Substance: LEVOFLOXACIN
     Dosage: UNK
     Route: 048
     Dates: end: 20161211
  36. PREDONINE [Concomitant]
     Active Substance: PREDNISOLONE
     Dosage: UNK
     Route: 048
     Dates: end: 20161211
  37. TAZOPIPE [Concomitant]
     Active Substance: PIPERACILLIN SODIUM\TAZOBACTAM SODIUM
     Indication: PNEUMONIA
     Dosage: UNK
     Route: 065
     Dates: end: 20161015
  38. VIDAZA [Concomitant]
     Active Substance: AZACITIDINE
     Indication: MYELODYSPLASTIC SYNDROME
     Dosage: 100 MILLIGRAM
     Route: 065
     Dates: end: 20161129
  39. FUNGUARD [Concomitant]
     Active Substance: MICAFUNGIN SODIUM
     Indication: LIVER ABSCESS
     Dosage: UNK
     Route: 065
     Dates: end: 20161221
  40. DARBEPOETIN ALFA [Suspect]
     Active Substance: DARBEPOETIN ALFA
     Dosage: 240 MICROGRAM
     Route: 058
     Dates: start: 20160810, end: 20161114
  41. HEAVY MAGNESIUM OXIDE [Concomitant]
     Active Substance: MAGNESIUM OXIDE
     Dosage: UNK
     Route: 048
     Dates: end: 20161222
  42. ACETYLOL [Concomitant]
     Indication: DRY SKIN
     Dosage: UNK
     Route: 061
     Dates: end: 20161222
  43. DIAINAMIX [CYANOCOBALAMIN;PYRIDOXINE HYDROCHLORIDE;THIAMINE DISULFIDE] [Concomitant]
     Dosage: UNK
     Route: 065
     Dates: end: 20160920
  44. FUNGUARD [Concomitant]
     Active Substance: MICAFUNGIN SODIUM
     Indication: SPLENIC ABSCESS
  45. MEROPENEM [MEROPENEM TRIHYDRATE] [Concomitant]
     Active Substance: MEROPENEM
     Indication: LIVER ABSCESS
     Dosage: UNK
     Route: 065
     Dates: end: 20161216
  46. LIVERES [FLAVINE ADENINE DINUCLEOTIDE;LIVER EXTRACT] [Concomitant]
     Indication: JAUNDICE
  47. FIRSTCIN [Concomitant]
     Active Substance: CEFOZOPRAN HYDROCHLORIDE
     Indication: LIVER ABSCESS
  48. ROHYPNOL [Concomitant]
     Active Substance: FLUNITRAZEPAM
     Indication: ABDOMINAL PAIN UPPER
     Dosage: UNK
     Route: 065
     Dates: end: 20161215
  49. MIDAZOLAM HYDROCHLORIDE. [Concomitant]
     Active Substance: MIDAZOLAM HYDROCHLORIDE
     Indication: MENTAL DISORDER
     Dosage: UNK
     Route: 065
     Dates: end: 20161221

REACTIONS (7)
  - Blood alkaline phosphatase increased [Not Recovered/Not Resolved]
  - Hepatosplenic abscess [Not Recovered/Not Resolved]
  - Blood bilirubin increased [Not Recovered/Not Resolved]
  - Death [Fatal]
  - Aspartate aminotransferase increased [Not Recovered/Not Resolved]
  - Blood lactate dehydrogenase increased [Not Recovered/Not Resolved]
  - Blood urea increased [Not Recovered/Not Resolved]

NARRATIVE: CASE EVENT DATE: 20161128
